FAERS Safety Report 18929057 (Version 1)
Quarter: 2021Q1

REPORT INFORMATION
  Report Type: Spontaneous
  Country: GB (occurrence: GB)
  Receive Date: 20210223
  Receipt Date: 20210223
  Transmission Date: 20210420
  Serious: Yes (Death)
  Sender: FDA-Public Use
  Company Number: GB-COLGATE PALMOLIVE COMPANY-20210100010

PATIENT
  Age: 59 Year
  Sex: Male

DRUGS (1)
  1. COLGATE TOTAL ADVANCED CLEAN [Suspect]
     Active Substance: SODIUM FLUORIDE\TRICLOSAN
     Dosage: EVERYDAY/TWICE A DAY

REACTIONS (3)
  - Neoplasm malignant [Fatal]
  - Occupational exposure to product [Fatal]
  - Colon cancer [Fatal]

NARRATIVE: CASE EVENT DATE: 201807
